FAERS Safety Report 7459401-X (Version None)
Quarter: 2011Q2

REPORT INFORMATION
  Report Type: 
  Country: None (occurrence: None)
  Receive Date: 20110505
  Receipt Date: 20110420
  Transmission Date: 20111010
  Serious: No
  Sender: FDA-Public Use
  Company Number: US-JNJFOC-20110410096

PATIENT
  Sex: Female
  Weight: 108.86 kg

DRUGS (1)
  1. DURAGESIC [Suspect]
     Indication: NECK PAIN
     Route: 062

REACTIONS (6)
  - THERAPEUTIC RESPONSE DECREASED [None]
  - TREATMENT NONCOMPLIANCE [None]
  - FATIGUE [None]
  - PRODUCT ADHESION ISSUE [None]
  - SOMNOLENCE [None]
  - WRONG TECHNIQUE IN DRUG USAGE PROCESS [None]
